FAERS Safety Report 13637729 (Version 1)
Quarter: 2017Q2

REPORT INFORMATION
  Report Type: Spontaneous
  Country: GB (occurrence: GB)
  Receive Date: 20170609
  Receipt Date: 20170609
  Transmission Date: 20170830
  Serious: Yes (Hospitalization)
  Sender: FDA-Public Use
  Company Number: GB-B. BRAUN MEDICAL INC.-2021747

PATIENT
  Age: 69 Year
  Sex: Male
  Weight: 86 kg

DRUGS (8)
  1. PROPOFOL. [Suspect]
     Active Substance: PROPOFOL
     Route: 042
  2. 1:10,000 ADRENALINE [Concomitant]
  3. LIDOCAINE. [Suspect]
     Active Substance: LIDOCAINE
     Indication: ENDOSCOPY
     Route: 042
  4. EPHEDRINE. [Concomitant]
     Active Substance: EPHEDRINE
  5. METARAMINOL [Concomitant]
     Active Substance: METARAMINOL
  6. ATRACURIUM [Suspect]
     Active Substance: ATRACURIUM
     Route: 042
  7. FENTANYL. [Suspect]
     Active Substance: FENTANYL
     Route: 042
  8. NOREPINEPHRINE. [Concomitant]
     Active Substance: NOREPINEPHRINE

REACTIONS (2)
  - Anaphylactic reaction [Recovered/Resolved]
  - Hypotension [None]

NARRATIVE: CASE EVENT DATE: 20160107
